FAERS Safety Report 25323847 (Version 1)
Quarter: 2025Q2

REPORT INFORMATION
  Report Type: Report from Study
  Country: FR (occurrence: FR)
  Receive Date: 20250516
  Receipt Date: 20250516
  Transmission Date: 20250716
  Serious: Yes (Other)
  Sender: AUROBINDO
  Company Number: FR-EMA-DD-20250430-7482707-063932

PATIENT
  Age: 43 Year
  Sex: Male

DRUGS (4)
  1. CETIRIZINE [Suspect]
     Active Substance: CETIRIZINE HYDROCHLORIDE
     Indication: Chronic spontaneous urticaria
     Route: 065
  2. HYDROXYZINE [Suspect]
     Active Substance: HYDROXYZINE HYDROCHLORIDE
     Indication: Product used for unknown indication
     Route: 065
  3. HYDROXYZINE [Suspect]
     Active Substance: HYDROXYZINE HYDROCHLORIDE
     Indication: Chronic spontaneous urticaria
  4. DEXCHLORPHENIRAMINE [Suspect]
     Active Substance: DEXCHLORPHENIRAMINE
     Indication: Chronic spontaneous urticaria
     Route: 065

REACTIONS (2)
  - Angioedema [Unknown]
  - Urticaria [Unknown]
